FAERS Safety Report 6239468-7 (Version None)
Quarter: 2009Q2

REPORT INFORMATION
  Report Type: 
  Country: None (occurrence: None)
  Receive Date: 20090618
  Receipt Date: 20090618
  Transmission Date: 20091009
  Serious: No
  Sender: FDA-Public Use
  Company Number: None

PATIENT
  Age: 65 Year
  Sex: Female
  Weight: 61.2356 kg

DRUGS (1)
  1. ZICAM GEL SWABS FOR THE NOSE [Suspect]
     Indication: NASOPHARYNGITIS
     Dosage: TWO DOSES 1 EACH DAY
     Dates: start: 20081206, end: 20081207

REACTIONS (1)
  - AGEUSIA [None]
